FAERS Safety Report 15997421 (Version 2)
Quarter: 2019Q1

REPORT INFORMATION
  Report Type: Spontaneous
  Country: LT (occurrence: LT)
  Receive Date: 20190222
  Receipt Date: 20190228
  Transmission Date: 20190418
  Serious: Yes (Life-Threatening, Hospitalization)
  Sender: FDA-Public Use
  Company Number: LT-BAUSCH-BL-2019-005417

PATIENT
  Sex: Female
  Weight: .59 kg

DRUGS (16)
  1. POTASSIUM CITRATE. [Concomitant]
     Active Substance: POTASSIUM CITRATE
     Indication: NEPHROLITHIASIS
  2. CHOLECALCIFEROL [Suspect]
     Active Substance: CHOLECALCIFEROL
     Indication: PRODUCT USED FOR UNKNOWN INDICATION
     Route: 065
  3. AMIKACIN. [Suspect]
     Active Substance: AMIKACIN
     Indication: SEPSIS
     Route: 065
  4. CALCIUM GLUCONATE. [Concomitant]
     Active Substance: CALCIUM GLUCONATE
     Indication: VENTRICULAR EXTRASYSTOLES
  5. CALCIUM GLUCONATE. [Concomitant]
     Active Substance: CALCIUM GLUCONATE
     Indication: HYPERKALAEMIA
  6. GLUCOSE [Concomitant]
     Active Substance: DEXTROSE
     Indication: HYPERKALAEMIA
  7. DEXAMETHASONE. [Suspect]
     Active Substance: DEXAMETHASONE
     Indication: EXTUBATION
     Route: 065
  8. SODIUM BICARBONATE. [Concomitant]
     Active Substance: SODIUM BICARBONATE
     Indication: HYPERKALAEMIA
  9. CEFOTAXIME [Concomitant]
     Active Substance: CEFOTAXIME SODIUM
     Indication: ANTIBIOTIC PROPHYLAXIS
  10. CEFUROXIME. [Suspect]
     Active Substance: CEFUROXIME
     Indication: URINARY TRACT INFECTION NEONATAL
     Route: 065
  11. GLUCOSE [Concomitant]
     Active Substance: DEXTROSE
     Indication: VENTRICULAR EXTRASYSTOLES
  12. PENICILIN [Concomitant]
     Indication: ANTIBIOTIC PROPHYLAXIS
  13. GENTAMICIN. [Concomitant]
     Active Substance: GENTAMICIN
     Indication: ANTIBIOTIC PROPHYLAXIS
  14. FUROSEMIDE. [Concomitant]
     Active Substance: FUROSEMIDE
     Indication: OLIGURIA
  15. IBUPROFEN. [Suspect]
     Active Substance: IBUPROFEN
     Indication: PATENT DUCTUS ARTERIOSUS
     Route: 065
  16. CAPTOPRIL. [Suspect]
     Active Substance: CAPTOPRIL
     Indication: HYPERTENSION
     Dosage: AFTER THE FORUTH DOSE THE TREATMENT WAS DISCONTINUED
     Route: 065

REACTIONS (3)
  - Acute kidney injury [Recovering/Resolving]
  - Sepsis [Recovered/Resolved]
  - Off label use [Unknown]
